FAERS Safety Report 6857125-0 (Version None)
Quarter: 2010Q3

REPORT INFORMATION
  Report Type: 
  Country: None (occurrence: None)
  Receive Date: 20100719
  Receipt Date: 20100708
  Transmission Date: 20110219
  Serious: Yes (Other)
  Sender: FDA-Public Use
  Company Number: B0665571A

PATIENT
  Age: 23 Year
  Sex: Male

DRUGS (11)
  1. ABACAVIR [Suspect]
     Indication: ANTIRETROVIRAL THERAPY
     Route: 065
  2. LAMIVUDINE-HIV [Suspect]
     Indication: ANTIRETROVIRAL THERAPY
     Route: 065
  3. FOSAMPRENAVIR [Suspect]
     Indication: ANTIRETROVIRAL THERAPY
     Route: 065
  4. ANTI-TUBERCULOSIS MEDICATION [Concomitant]
     Route: 065
  5. METHYLPREDNISOLONE [Concomitant]
     Dosage: 60MG PER DAY
     Route: 065
  6. COTRIM [Concomitant]
     Indication: PROPHYLAXIS
  7. PYRAZINAMIDE [Concomitant]
     Route: 065
  8. ETHIONAMIDE [Concomitant]
     Route: 065
  9. ETHAMBUTOL HYDROCHLORIDE [Concomitant]
     Route: 065
  10. CYCLOSERINE [Concomitant]
     Route: 065
  11. AMIKACIN [Concomitant]
     Route: 065

REACTIONS (5)
  - IMMUNE RECONSTITUTION SYNDROME [None]
  - LYMPH NODE PAIN [None]
  - LYMPHADENOPATHY [None]
  - NECROSIS [None]
  - PYREXIA [None]
